FAERS Safety Report 12944653 (Version 1)
Quarter: 2016Q4

REPORT INFORMATION
  Report Type: Spontaneous
  Country: US (occurrence: US)
  Receive Date: 20161116
  Receipt Date: 20161116
  Transmission Date: 20170207
  Serious: No
  Sender: FDA-Public Use
  Company Number: US-JNJFOC-20161015164

PATIENT
  Age: 84 Year
  Sex: Female
  Weight: 47.17 kg

DRUGS (2)
  1. WOMENS ROGAINE UNSCENTED [Suspect]
     Active Substance: MINOXIDIL
     Indication: ALOPECIA
     Dosage: 1/2 CAPFUL, SOMETIME IN MID-AUGUST
     Route: 061
     Dates: start: 201608
  2. WOMENS ROGAINE UNSCENTED [Suspect]
     Active Substance: MINOXIDIL
     Route: 061

REACTIONS (6)
  - Wrong technique in product usage process [Recovered/Resolved]
  - Product use issue [Unknown]
  - Hair texture abnormal [Recovered/Resolved]
  - Intentional product misuse [Unknown]
  - Product formulation issue [Unknown]
  - Drug administration error [Recovered/Resolved]

NARRATIVE: CASE EVENT DATE: 201608
